FAERS Safety Report 9369631 (Version 2)
Quarter: 2013Q3

REPORT INFORMATION
  Report Type: Spontaneous
  Country: US (occurrence: US)
  Receive Date: 20130626
  Receipt Date: 20130702
  Transmission Date: 20140515
  Serious: Yes (Hospitalization)
  Sender: FDA-Public Use
  Company Number: US-ALEXION PHARMACEUTICALS INC.-A201301437

PATIENT
  Sex: Female

DRUGS (2)
  1. SOLIRIS 300MG [Suspect]
     Indication: HAEMOLYTIC URAEMIC SYNDROME
     Dosage: UNK
     Route: 042
  2. SOLIRIS 300MG [Suspect]
     Dosage: UNK, Q2W
     Route: 042

REACTIONS (7)
  - Diabetes mellitus inadequate control [Unknown]
  - Dyspnoea [Unknown]
  - Photophobia [Unknown]
  - Malaise [Unknown]
  - Pyrexia [Unknown]
  - Asthenia [Unknown]
  - Headache [Unknown]
